FAERS Safety Report 6103708-5 (Version None)
Quarter: 2009Q1

REPORT INFORMATION
  Report Type: 
  Country: None (occurrence: None)
  Receive Date: 20090305
  Receipt Date: 20090227
  Transmission Date: 20090719
  Serious: Yes (Life-Threatening, Hospitalization)
  Sender: FDA-Public Use
  Company Number: JP-AVENTIS-200910423JP

PATIENT
  Age: 59 Year
  Sex: Female
  Weight: 59.4 kg

DRUGS (6)
  1. ALLEGRA [Suspect]
     Indication: URTICARIA
     Route: 048
     Dates: start: 20081117, end: 20090130
  2. SHOSEIRYUTO [Suspect]
     Route: 048
     Dates: start: 20090127, end: 20090130
  3. CLARITHROMYCIN [Concomitant]
     Route: 048
     Dates: start: 20090127, end: 20090130
  4. OPIUM ALKALOIDS AND DERIVATIVES [Concomitant]
     Route: 048
     Dates: start: 20090127, end: 20090130
  5. EMPYNASE                           /00521001/ [Concomitant]
     Route: 048
     Dates: start: 20090127, end: 20090130
  6. ZYRTEC [Concomitant]
     Route: 048
     Dates: start: 20090127, end: 20090130

REACTIONS (1)
  - INTERSTITIAL LUNG DISEASE [None]
